FAERS Safety Report 17517902 (Version 1)
Quarter: 2020Q1

REPORT INFORMATION
  Report Type: Spontaneous
  Country: IT (occurrence: IT)
  Receive Date: 20200309
  Receipt Date: 20200309
  Transmission Date: 20200409
  Serious: Yes (Hospitalization)
  Sender: FDA-Public Use
  Company Number: IT-ASTRAZENECA-2020SE32858

PATIENT
  Age: 57 Year
  Sex: Male

DRUGS (4)
  1. CLOPIXOL [Concomitant]
     Active Substance: ZUCLOPENTHIXOL
     Dosage: 200.0MG UNKNOWN
     Route: 030
  2. QUETIAPINE FUMARATE. [Suspect]
     Active Substance: QUETIAPINE FUMARATE
     Indication: INTENTIONAL SELF-INJURY
     Dosage: 1000.0MG ONCE/SINGLE ADMINISTRATION
     Route: 048
     Dates: start: 20191025, end: 20191025
  3. PALIPERIDONE. [Suspect]
     Active Substance: PALIPERIDONE
     Indication: INTENTIONAL SELF-INJURY
     Dosage: 48.0MG ONCE/SINGLE ADMINISTRATION
     Route: 048
     Dates: start: 20191025, end: 20191025
  4. QUETIAPINE FUMARATE. [Suspect]
     Active Substance: QUETIAPINE FUMARATE
     Indication: INTENTIONAL SELF-INJURY
     Dosage: 4000.0MG ONCE/SINGLE ADMINISTRATION
     Route: 048
     Dates: start: 20191025, end: 20191025

REACTIONS (3)
  - Slow speech [Recovering/Resolving]
  - Sopor [Recovering/Resolving]
  - Drug abuse [Recovering/Resolving]

NARRATIVE: CASE EVENT DATE: 20191025
